FAERS Safety Report 9277956 (Version 1)
Quarter: 2013Q2

REPORT INFORMATION
  Report Type: Spontaneous
  Country: US (occurrence: None)
  Receive Date: 20130503
  Receipt Date: 20130503
  Transmission Date: 20140414
  Serious: Yes (Life-Threatening)
  Sender: FDA-Public Use
  Company Number: None

PATIENT
  Age: 50 Year
  Sex: Female
  Weight: 100.25 kg

DRUGS (9)
  1. MEANINGFUL BEAUTY NOS [Suspect]
     Indication: SKIN DISORDER
     Route: 061
     Dates: start: 20120501, end: 20120803
  2. SKIN ...CLEANSER [Concomitant]
  3. ANTIOXYDANT DAY CREAM [Concomitant]
  4. ANTIAGING NIGHT CREAM [Concomitant]
  5. LIFTING EYE CREAM [Concomitant]
  6. FIRMING CHOST + NECK CREME PLUS [Concomitant]
  7. DEEP CLEANSING MASQUE [Concomitant]
  8. GLOWING SERUM [Concomitant]
  9. WRINKLE SMOOTHING CAPSULES [Concomitant]

REACTIONS (4)
  - Angioedema [None]
  - Anaphylactic reaction [None]
  - Blister [None]
  - Eye swelling [None]
